FAERS Safety Report 13220684 (Version 1)
Quarter: 2017Q1

REPORT INFORMATION
  Report Type: Report from Study
  Country: None (occurrence: US)
  Receive Date: 20170211
  Receipt Date: 20170211
  Transmission Date: 20170428
  Serious: Yes (Hospitalization, Other)
  Sender: FDA-Public Use
  Company Number: US-ABBVIE-16K-163-1814454-00

PATIENT
  Age: 70 Year
  Sex: Female

DRUGS (3)
  1. HUMIRA [Suspect]
     Active Substance: ADALIMUMAB
     Indication: RHEUMATOID ARTHRITIS
     Route: 058
     Dates: start: 20160112, end: 201605
  2. HUMIRA [Suspect]
     Active Substance: ADALIMUMAB
     Route: 058
     Dates: start: 20160610
  3. XARELTO [Suspect]
     Active Substance: RIVAROXABAN
     Indication: PRODUCT USED FOR UNKNOWN INDICATION
     Route: 065
     Dates: end: 201605

REACTIONS (9)
  - Lethargy [Recovered/Resolved]
  - Haemorrhage [Unknown]
  - Atrial fibrillation [Not Recovered/Not Resolved]
  - Laceration [Recovered/Resolved]
  - Deep vein thrombosis [Unknown]
  - Post procedural infection [Recovered/Resolved]
  - Haemoglobin decreased [Recovered/Resolved]
  - Squamous cell carcinoma [Not Recovered/Not Resolved]
  - Cellulitis [Unknown]

NARRATIVE: CASE EVENT DATE: 201603
